FAERS Safety Report 15300835 (Version 1)
Quarter: 2018Q3

REPORT INFORMATION
  Report Type: Spontaneous
  Country: US (occurrence: US)
  Receive Date: 20180821
  Receipt Date: 20180821
  Transmission Date: 20181010
  Serious: No
  Sender: FDA-Public Use
  Company Number: US-MYLANLABS-2018M1061333

PATIENT

DRUGS (3)
  1. LIDOCAINE PATCH [Suspect]
     Active Substance: LIDOCAINE
     Indication: BACK PAIN
     Route: 003
  2. LIDOCAINE PATCH [Suspect]
     Active Substance: LIDOCAINE
     Indication: NEURALGIA
     Route: 003
  3. LIDOCAINE PATCH [Suspect]
     Active Substance: LIDOCAINE
     Indication: POST HERPETIC NEURALGIA

REACTIONS (4)
  - Product adhesion issue [Unknown]
  - Wrong technique in product usage process [Unknown]
  - Product quality issue [Unknown]
  - Off label use [Unknown]
